FAERS Safety Report 7499757-5 (Version None)
Quarter: 2011Q2

REPORT INFORMATION
  Report Type: 
  Country: None (occurrence: None)
  Receive Date: 20110524
  Receipt Date: 20110516
  Transmission Date: 20111010
  Serious: Yes (Hospitalization)
  Sender: FDA-Public Use
  Company Number: US-ACTELION-A-US2010-40140

PATIENT

DRUGS (5)
  1. VENTAVIS [Suspect]
     Indication: PULMONARY ARTERIAL HYPERTENSION
     Dosage: 20
     Route: 055
     Dates: start: 20080812
  2. COUMADIN [Concomitant]
  3. REVATIO [Concomitant]
  4. FENTANYL [Suspect]
  5. TRACLEER [Suspect]
     Indication: PULMONARY ARTERIAL HYPERTENSION
     Dosage: UNK
     Route: 048
     Dates: start: 20070504, end: 20091019

REACTIONS (6)
  - SYNCOPE [None]
  - HYPERSENSITIVITY [None]
  - CONDITION AGGRAVATED [None]
  - COUGH [None]
  - DIZZINESS [None]
  - PULMONARY ARTERIAL HYPERTENSION [None]
